FAERS Safety Report 16013812 (Version 1)
Quarter: 2019Q1

REPORT INFORMATION
  Report Type: Spontaneous
  Country: FR (occurrence: FR)
  Receive Date: 20190227
  Receipt Date: 20190227
  Transmission Date: 20190418
  Serious: Yes (Other)
  Sender: FDA-Public Use
  Company Number: FR-OTSUKA-2018_038056

PATIENT
  Age: 50 Year
  Sex: Female
  Weight: 86 kg

DRUGS (5)
  1. ABILIFY MAINTENA [Suspect]
     Active Substance: ARIPIPRAZOLE
     Dosage: 300 MG, QM
     Route: 030
     Dates: start: 201812
  2. ABILIFY MAINTENA [Suspect]
     Active Substance: ARIPIPRAZOLE
     Indication: BIPOLAR DISORDER
     Dosage: 400 MG, QM
     Route: 030
     Dates: start: 2015
  3. ABILIFY MAINTENA [Suspect]
     Active Substance: ARIPIPRAZOLE
     Dosage: 160 MG, QM
     Route: 030
     Dates: start: 201809, end: 201811
  4. ABILIFY MAINTENA [Suspect]
     Active Substance: ARIPIPRAZOLE
     Indication: SCHIZOPHRENIA
     Dosage: 200 MG, QM
     Route: 030
     Dates: start: 201806, end: 201808
  5. ABILIFY MAINTENA [Suspect]
     Active Substance: ARIPIPRAZOLE
     Dosage: 300 MG, QM
     Route: 030

REACTIONS (6)
  - Prescribed underdose [Unknown]
  - Anaesthesia [Recovered/Resolved]
  - Nervousness [Recovered/Resolved]
  - Somnolence [Not Recovered/Not Resolved]
  - Drug effect incomplete [Unknown]
  - Weight increased [Not Recovered/Not Resolved]
